FAERS Safety Report 15431742 (Version 3)
Quarter: 2018Q4

REPORT INFORMATION
  Report Type: Report from Study
  Country: US (occurrence: US)
  Receive Date: 20180926
  Receipt Date: 20181030
  Transmission Date: 20190204
  Serious: Yes (Other)
  Sender: FDA-Public Use
  Company Number: US-SA-2018SA131589

PATIENT
  Age: 61 Year
  Sex: Female

DRUGS (2)
  1. INSULIN GLARGINE [Suspect]
     Active Substance: INSULIN GLARGINE
     Indication: TYPE 2 DIABETES MELLITUS
     Dosage: 30 U, UNK
     Route: 065
     Dates: start: 20180122
  2. INSULIN GLARGINE [Suspect]
     Active Substance: INSULIN GLARGINE
     Dosage: 20 U, UNK
     Route: 065
     Dates: start: 20180122

REACTIONS (11)
  - Cerebrovascular accident [Unknown]
  - Hypoglycaemia [Recovered/Resolved]
  - Visual impairment [Unknown]
  - Blood glucose decreased [Unknown]
  - Dizziness [Recovered/Resolved]
  - Feeling cold [Recovered/Resolved]
  - Hyperhidrosis [Recovered/Resolved]
  - Product dose omission [Unknown]
  - Blood glucose increased [Recovered/Resolved]
  - Paraesthesia [Recovered/Resolved]
  - Glycosylated haemoglobin increased [Recovering/Resolving]

NARRATIVE: CASE EVENT DATE: 20180122
